FAERS Safety Report 8797368 (Version 2)
Quarter: 2015Q2

REPORT INFORMATION
  Report Type: Report from Study
  Country: US (occurrence: US)
  Receive Date: 20120919
  Receipt Date: 20150629
  Transmission Date: 20150821
  Serious: Yes (Death, Hospitalization)
  Sender: FDA-Public Use
  Company Number: US-ROCHE-1097742

PATIENT
  Sex: Male

DRUGS (44)
  1. MAGNESIUM SULPHATE [Concomitant]
     Active Substance: MAGNESIUM SULFATE
     Dosage: ONCE SHORT IN NS 250 ML
     Route: 042
     Dates: start: 20061027
  2. PEGFILGRASTIM [Concomitant]
     Active Substance: PEGFILGRASTIM
     Route: 058
     Dates: start: 20061027
  3. PALONOSETRON [Concomitant]
     Active Substance: PALONOSETRON
     Dosage: DAILY SHORT FOR 1 DAY IN NS 250 ML
     Route: 042
     Dates: start: 20061127
  4. LEVAQUIN [Concomitant]
     Active Substance: LEVOFLOXACIN
     Route: 048
  5. QUININE SULFATE. [Concomitant]
     Active Substance: QUININE SULFATE
     Dosage: BED TIME
     Route: 048
  6. AVASTIN [Suspect]
     Active Substance: BEVACIZUMAB
     Dosage: 1675 MG (AT 15 MG/KG)(OF 25 MG/ML), DAILY SHORT OF 1 DAY IN NS 100 ML.
     Route: 042
  7. GRANISETRON [Concomitant]
     Active Substance: GRANISETRON
     Route: 042
     Dates: start: 20070808
  8. MAGNESIUM SULPHATE [Concomitant]
     Active Substance: MAGNESIUM SULFATE
     Dosage: ONCE SHORT OVER TWO HOURS IN D5W
     Route: 042
     Dates: start: 20070808
  9. TOPROL XL [Concomitant]
     Active Substance: METOPROLOL SUCCINATE
     Route: 048
  10. LUNESTA [Concomitant]
     Active Substance: ESZOPICLONE
     Dosage: BED TIME
     Route: 048
  11. DARBEPOETIN ALFA [Concomitant]
     Active Substance: DARBEPOETIN ALFA
  12. ZOLEDRONIC ACID [Concomitant]
     Active Substance: ZOLEDRONIC ACID
     Route: 042
  13. PROTONIX (UNITED STATES) [Concomitant]
     Route: 048
  14. IPRATROPIUM BROMIDE. [Concomitant]
     Active Substance: IPRATROPIUM BROMIDE
     Route: 045
  15. AVASTIN [Suspect]
     Active Substance: BEVACIZUMAB
     Dosage: 1675 MG (AT 15 MG/KG)(OF 25 MG/ML) DAILY SHORT OF ONE DAY IN NS 100 ML.
     Route: 042
  16. VITAMIN B12 [Concomitant]
     Active Substance: CYANOCOBALAMIN
     Route: 058
  17. COUMADIN [Concomitant]
     Active Substance: WARFARIN SODIUM
  18. IPRATROPIUM BROMIDE. [Concomitant]
     Active Substance: IPRATROPIUM BROMIDE
     Route: 047
  19. OLUX [Concomitant]
     Active Substance: CLOBETASOL PROPIONATE
     Route: 061
  20. PEMETREXED [Concomitant]
     Active Substance: PEMETREXED
     Route: 042
  21. OXYBUTYNIN [Concomitant]
     Active Substance: OXYBUTYNIN
     Route: 048
  22. PERSANTINE [Concomitant]
     Active Substance: DIPYRIDAMOLE
     Route: 042
  23. CARDIOLITE [Concomitant]
     Active Substance: TECHNETIUM TC-99M SESTAMIBI\TETRAKIS(2-METHOXYISOBUTYLISOCYANIDE)COPPER(I) TETRAFLUOROBORATE
  24. NAPROSYN [Concomitant]
     Active Substance: NAPROXEN
     Indication: LEUKOPENIA
     Route: 048
  25. FLUOCINOLONE ACETONIDE. [Concomitant]
     Active Substance: FLUOCINOLONE ACETONIDE
     Route: 061
  26. ZITHROMAX [Concomitant]
     Active Substance: AZITHROMYCIN DIHYDRATE
     Route: 048
  27. AVASTIN [Suspect]
     Active Substance: BEVACIZUMAB
     Indication: HAEMATOLOGICAL MALIGNANCY
     Route: 042
     Dates: start: 20070711
  28. AVASTIN [Suspect]
     Active Substance: BEVACIZUMAB
     Indication: MALIGNANT RESPIRATORY TRACT NEOPLASM
     Dosage: 1450 MG (AT 15 MG/KG) (OF 25 MG/ML).
     Route: 042
     Dates: start: 20070808
  29. TARCEVA [Suspect]
     Active Substance: ERLOTINIB HYDROCHLORIDE
     Indication: LUNG NEOPLASM MALIGNANT
     Route: 048
     Dates: start: 200612
  30. ETOPOSIDE. [Concomitant]
     Active Substance: ETOPOSIDE
     Dosage: AT 100 MG/M2, STRENGTH: 20 MG/ML
     Route: 042
     Dates: start: 20070808
  31. ZOVIRAX [Concomitant]
     Active Substance: ACYCLOVIR
     Route: 048
  32. CELEBREX [Concomitant]
     Active Substance: CELECOXIB
     Route: 048
  33. RITALIN [Concomitant]
     Active Substance: METHYLPHENIDATE HYDROCHLORIDE
     Route: 048
  34. DEXAMETHASONE. [Concomitant]
     Active Substance: DEXAMETHASONE
     Dosage: DAILY SHORT FOR ONE DAY IN NS 50 ML.
     Route: 042
     Dates: start: 20070808
  35. POTASSIUM CHLORIDE. [Concomitant]
     Active Substance: POTASSIUM CHLORIDE
     Dosage: ONCE SHORT OVER TWO HOURS IN D5W
     Route: 042
     Dates: start: 20070808
  36. PALONOSETRON [Concomitant]
     Active Substance: PALONOSETRON
     Dosage: DAILY SHORT FOR 1 DAY IN NS 50 ML
     Route: 042
     Dates: start: 20061027
  37. CALCIUM GLUCONATE. [Concomitant]
     Active Substance: CALCIUM GLUCONATE
     Route: 042
     Dates: start: 20061027
  38. VICODIN [Concomitant]
     Active Substance: ACETAMINOPHEN\HYDROCODONE BITARTRATE
     Indication: PAIN
     Route: 048
  39. ARANESP [Concomitant]
     Active Substance: DARBEPOETIN ALFA
     Indication: ANAEMIA
  40. CISPLATIN. [Concomitant]
     Active Substance: CISPLATIN
     Dosage: AT 60 MG/M2, STRENGTH: 1 MG/ML
     Route: 042
     Dates: start: 20070808
  41. CARBOPLATIN. [Concomitant]
     Active Substance: CARBOPLATIN
     Dosage: AT 3 AUC, DAILY SHORT OVER ONE HOUR FOR ONE DAY. SAME DOSE WAS ALSO GIVEN ON 17/NOV/2006
     Route: 042
     Dates: start: 20061027
  42. DOCETAXEL. [Concomitant]
     Active Substance: DOCETAXEL
     Dosage: DAILY SHORT OVER ONE HOUR FOR ONE DAY.
     Route: 042
     Dates: start: 20061027
  43. FLOMAX (UNITED STATES) [Concomitant]
     Route: 048
  44. AMINOPHYLLINE [Concomitant]
     Active Substance: AMINOPHYLLINE
     Route: 042

REACTIONS (14)
  - Pain in jaw [Unknown]
  - Pain [Unknown]
  - Fatigue [Unknown]
  - Asthenia [Unknown]
  - Death [Fatal]
  - Nausea [Unknown]
  - Bone disorder [Unknown]
  - Disease progression [Unknown]
  - Headache [Unknown]
  - Neck pain [Unknown]
  - Pulmonary embolism [Unknown]
  - Musculoskeletal pain [Unknown]
  - Dyspnoea exertional [Unknown]
  - Chest pain [Unknown]
